FAERS Safety Report 18367250 (Version 1)
Quarter: 2020Q4

REPORT INFORMATION
  Report Type: Spontaneous
  Country: US (occurrence: US)
  Receive Date: 20201009
  Receipt Date: 20201009
  Transmission Date: 20210114
  Serious: No
  Sender: FDA-Public Use
  Company Number: US-BAUSCH-BL-2020-027377

PATIENT
  Age: 75 Year
  Sex: Male

DRUGS (2)
  1. LATANOPROST OPHTHALMIC SOLUTION 0.005% [Suspect]
     Active Substance: LATANOPROST
     Indication: GLAUCOMA
     Dosage: DROP IN EACH EYE DAILY, STARTED BEFORE ABOUT 6 YEARS
     Route: 047
     Dates: start: 2014, end: 2020
  2. LATANOPROST OPHTHALMIC SOLUTION 0.005% [Suspect]
     Active Substance: LATANOPROST
     Dosage: NEW BOTTLE
     Route: 047
     Dates: start: 202009

REACTIONS (5)
  - Vision blurred [Unknown]
  - Ocular hyperaemia [Recovering/Resolving]
  - Product delivery mechanism issue [Unknown]
  - Product quality issue [Unknown]
  - Visual impairment [Recovering/Resolving]

NARRATIVE: CASE EVENT DATE: 202009
